FAERS Safety Report 21023984 (Version 4)
Quarter: 2023Q1

REPORT INFORMATION
  Report Type: Spontaneous
  Country: FR (occurrence: FR)
  Receive Date: 20220629
  Receipt Date: 20230109
  Transmission Date: 20230417
  Serious: Yes (Other)
  Sender: FDA-Public Use
  Company Number: FR-NOVARTISPH-NVSC2022FR145925

PATIENT
  Age: 26 Year
  Sex: Female

DRUGS (25)
  1. OMEPRAZOLE [Suspect]
     Active Substance: OMEPRAZOLE
     Indication: Pancreatic failure
     Dosage: 40 MG, Q12H
     Route: 065
     Dates: end: 20210202
  2. OMEPRAZOLE [Suspect]
     Active Substance: OMEPRAZOLE
     Indication: Cystic fibrosis
  3. OMEPRAZOLE [Suspect]
     Active Substance: OMEPRAZOLE
     Indication: Infection
  4. OMEPRAZOLE [Suspect]
     Active Substance: OMEPRAZOLE
     Indication: Prophylaxis
  5. CREON [Suspect]
     Active Substance: PANCRELIPASE AMYLASE\PANCRELIPASE LIPASE\PANCRELIPASE PROTEASE
     Indication: Pancreatic failure
     Dosage: 1 DOSAGE FORM, QD (11 TO 16 CAPS DAILY)
     Route: 065
     Dates: end: 20210202
  6. CREON [Suspect]
     Active Substance: PANCRELIPASE AMYLASE\PANCRELIPASE LIPASE\PANCRELIPASE PROTEASE
     Indication: Cystic fibrosis
  7. CREON [Suspect]
     Active Substance: PANCRELIPASE AMYLASE\PANCRELIPASE LIPASE\PANCRELIPASE PROTEASE
     Indication: Infection
  8. CALCIUM PHOSPHATE, DIBASIC, ANHYDROUS\MAGNESIUM GLYCEROPHOSPHATE\PHOSP [Suspect]
     Active Substance: CALCIUM PHOSPHATE, DIBASIC, ANHYDROUS\MAGNESIUM GLYCEROPHOSPHATE\PHOSPHORIC ACID\SODIUM PHOSPHATE, D
     Indication: Product used for unknown indication
     Dosage: 200 DRP (DROP (1/12 MILLILITRE))
     Route: 048
  9. BRICANYL [Suspect]
     Active Substance: TERBUTALINE SULFATE
     Indication: Infection
     Dosage: 2 INHALATIONS IF NEEDED
  10. BRICANYL [Suspect]
     Active Substance: TERBUTALINE SULFATE
     Indication: Pancreatic failure
  11. BRICANYL [Suspect]
     Active Substance: TERBUTALINE SULFATE
     Indication: Cystic fibrosis
  12. INSULIN NOS [Suspect]
     Active Substance: INSULIN NOS
     Indication: Type 1 diabetes mellitus
     Dosage: 200 DRP (1/12 MILLILITRE)
     Route: 065
  13. INSULIN NOS [Suspect]
     Active Substance: INSULIN NOS
     Dosage: 5 IU, QD
     Route: 065
  14. CEFTAZIDIME [Suspect]
     Active Substance: CEFTAZIDIME
     Indication: Infection
     Dosage: 5 G, Q12H
     Route: 065
     Dates: start: 20200119, end: 20210127
  15. CEFTAZIDIME [Suspect]
     Active Substance: CEFTAZIDIME
     Indication: Pancreatic failure
  16. CEFTAZIDIME [Suspect]
     Active Substance: CEFTAZIDIME
     Indication: Cystic fibrosis
  17. .ALPHA.-TOCOPHEROL ACETATE, D- [Suspect]
     Active Substance: .ALPHA.-TOCOPHEROL ACETATE, D-
     Indication: Product used for unknown indication
     Dosage: UNK
     Route: 065
  18. PANCREATIN [Suspect]
     Active Substance: PANCRELIPASE
     Indication: Product used for unknown indication
     Dosage: 160, 000 UI/D
     Route: 065
  19. SODIUM PHOSPHATE [Suspect]
     Active Substance: SODIUM PHOSPHATE
     Indication: Product used for unknown indication
     Dosage: UNK
     Route: 048
  20. CEFTAZIDIME [Suspect]
     Active Substance: CEFTAZIDIME
     Indication: Product used for unknown indication
     Dosage: UNK
     Route: 065
     Dates: start: 20200922, end: 20201007
  21. AZACTAM [Suspect]
     Active Substance: AZTREONAM
     Indication: Infection
     Dosage: 6 G, QD
     Route: 065
     Dates: start: 20210127, end: 20210202
  22. AZACTAM [Suspect]
     Active Substance: AZTREONAM
     Indication: Pancreatic failure
     Dosage: 1 G, UNKNOWN
     Route: 065
  23. AZACTAM [Suspect]
     Active Substance: AZTREONAM
     Indication: Prophylaxis
  24. AZACTAM [Suspect]
     Active Substance: AZTREONAM
     Indication: Cystic fibrosis
  25. KALYDECO [Suspect]
     Active Substance: IVACAFTOR
     Indication: Cystic fibrosis
     Dosage: UNK
     Route: 048
     Dates: start: 2020, end: 20210202

REACTIONS (2)
  - Premature delivery [Unknown]
  - Maternal exposure during pregnancy [Unknown]

NARRATIVE: CASE EVENT DATE: 20210202
